FAERS Safety Report 6407243 (Version 2)
Quarter: 2013Q1

REPORT INFORMATION
  Report Type: Spontaneous
  Country: FR (occurrence: None)
  Receive Date: 20070828
  Receipt Date: 20121228
  Transmission Date: 20140127
  Serious: Yes (Other)
  Sender: FDA-Public Use
  Company Number: 2007US-09343

PATIENT
  Age: 63 Year
  Sex: Female

DRUGS (6)
  1. ISOPTIN SR [Suspect]
     Indication: TACHYCARDIA
     Dosage: 120 MG, 2 IN1  DOSE, ORAL
     Route: 048
  2. ESTRADIOL (ESTRADIOL) (GEL) [Concomitant]
  3. DYDROGESTONE (DYDROGESTONE) [Concomitant]
  4. CLORAZEPATE (CLORAZEPATE) [Concomitant]
  5. NITROFURANTOIN (NITROFURANTOIN ) [Concomitant]
  6. FUMETERRE (FUMETERRE) [Concomitant]

REACTIONS (5)
  - Abdominal pain [None]
  - Renal pain [None]
  - Epistaxis [None]
  - Genital haemorrhage [None]
  - Skin haemorrhage [None]
